FAERS Safety Report 5485424-6 (Version None)
Quarter: 2007Q4

REPORT INFORMATION
  Report Type: 
  Country: None (occurrence: None)
  Receive Date: 20071015
  Receipt Date: 20071004
  Transmission Date: 20080405
  Serious: Yes (Hospitalization)
  Sender: FDA-Public Use
  Company Number: JP-JNJFOC-20040502412

PATIENT
  Sex: Male
  Weight: 50 kg

DRUGS (10)
  1. REMICADE [Suspect]
     Route: 041
     Dates: start: 20040312
  2. REMICADE [Suspect]
     Route: 041
     Dates: start: 20040312
  3. REMICADE [Suspect]
     Indication: RHEUMATOID ARTHRITIS
     Route: 041
     Dates: start: 20040312
  4. PREDONINE [Concomitant]
     Indication: RHEUMATOID ARTHRITIS
     Route: 048
  5. RHEUMATREX [Concomitant]
     Indication: RHEUMATOID ARTHRITIS
     Route: 048
  6. PROTECADIN [Concomitant]
     Route: 048
  7. ZYLORIC [Concomitant]
     Route: 048
  8. VOLTAREN [Concomitant]
     Indication: RHEUMATOID ARTHRITIS
     Dosage: (50)
  9. INH [Concomitant]
     Indication: ANTIBIOTIC PROPHYLAXIS
  10. RFP [Concomitant]

REACTIONS (3)
  - HYPERURICAEMIA [None]
  - PNEUMONIA [None]
  - PYREXIA [None]
